FAERS Safety Report 15163459 (Version 2)
Quarter: 2018Q3

REPORT INFORMATION
  Report Type: Report from Study
  Country: None (occurrence: CA)
  Receive Date: 20180719
  Receipt Date: 20180730
  Transmission Date: 20181010
  Serious: Yes (Disabling)
  Sender: FDA-Public Use
  Company Number: CA-ABBVIE-18S-028-2415849-00

PATIENT
  Sex: Female
  Weight: 68.1 kg

DRUGS (3)
  1. CLARITIN [Concomitant]
     Active Substance: LORATADINE
     Indication: PRODUCT USED FOR UNKNOWN INDICATION
     Dosage: PRN?AS NEEDED
  2. NORTULATE [Concomitant]
     Indication: MENORRHAGIA
     Route: 048
     Dates: start: 20180528
  3. LUPRON DEPOT [Suspect]
     Active Substance: LEUPROLIDE ACETATE
     Indication: MENORRHAGIA
     Route: 030
     Dates: start: 20180528, end: 20180528

REACTIONS (5)
  - Vaginal haemorrhage [Unknown]
  - Dysuria [Unknown]
  - Insomnia [Unknown]
  - Alopecia [Unknown]
  - Adverse drug reaction [Unknown]

NARRATIVE: CASE EVENT DATE: 2018
